FAERS Safety Report 9054057 (Version 4)
Quarter: 2013Q4

REPORT INFORMATION
  Report Type: Report from Study
  Country: FR (occurrence: FR)
  Receive Date: 20130207
  Receipt Date: 20131204
  Transmission Date: 20140711
  Serious: Yes (Life-Threatening, Hospitalization)
  Sender: FDA-Public Use
  Company Number: FR-EISAI INC-E7389-03481-CLI-FR

PATIENT
  Age: 53 Year
  Sex: Female
  Weight: 48 kg

DRUGS (3)
  1. E7389 (BOLD) [Suspect]
     Indication: SARCOMA
     Route: 041
     Dates: start: 20121212
  2. INNOHEP [Concomitant]
     Indication: PROPHYLAXIS
     Route: 058
     Dates: start: 20121017
  3. ESTREVA [Concomitant]
     Indication: FLUSHING
     Route: 065
     Dates: start: 20121229

REACTIONS (1)
  - Retroperitoneal haemorrhage [Recovered/Resolved]
